FAERS Safety Report 20134509 (Version 1)
Quarter: 2021Q4

REPORT INFORMATION
  Report Type: Spontaneous
  Country: GB (occurrence: GB)
  Receive Date: 20211201
  Receipt Date: 20211201
  Transmission Date: 20220303
  Serious: Yes (Hospitalization)
  Sender: FDA-Public Use
  Company Number: None

PATIENT
  Sex: Male

DRUGS (10)
  1. MYCOPHENOLATE MOFETIL [Suspect]
     Active Substance: MYCOPHENOLATE MOFETIL
     Route: 065
  2. ASPIRIN [Concomitant]
     Active Substance: ASPIRIN
     Dosage: 1 DOSAGE FORMS DAILY; STRENGTH : 75 MG
  3. BISOPROLOL [Concomitant]
     Active Substance: BISOPROLOL
     Dosage: 1 DOSAGE FORMS DAILY; STRENGTH : 5 MG
  4. CHOLECALCIFEROL [Concomitant]
     Active Substance: CHOLECALCIFEROL
  5. FLUTICASONE [Concomitant]
     Active Substance: FLUTICASONE
     Dosage: 4 DOSAGE FORMS DAILY; STRENGTH : 50 MICROGRAM, TWO SPRAYS TO BE USED IN EACH NOSTRIL ONCE A DAY
     Route: 045
  6. MORPHINE [Concomitant]
     Active Substance: MORPHINE
     Dosage: 10MG/5ML , 2.5-5MLS FOUR TIMES DAILY PRN AS NEEDED
  7. OMEPRAZOLE [Concomitant]
     Active Substance: OMEPRAZOLE
     Dosage: 2 DOSAGE FORMS DAILY; STRENGTH : 20 MG
  8. PREDNISOLONE [Concomitant]
     Active Substance: PREDNISOLONE
     Dosage: 30 MILLIGRAM DAILY; FOR 18 MONTHS
  9. RAMIPRIL [Concomitant]
     Active Substance: RAMIPRIL
     Dosage: 1 DOSAGE FORMS DAILY; STRENGTH : 5 MG, IN THE MORNINGHY
  10. ROSUVASTATIN [Concomitant]
     Active Substance: ROSUVASTATIN
     Dosage: 1 DOSAGE FORMS DAILY; STRENGTH : 5 MG

REACTIONS (1)
  - Pancreatitis acute [Recovered/Resolved]
